FAERS Safety Report 22097137 (Version 1)
Quarter: 2023Q1

REPORT INFORMATION
  Report Type: Spontaneous
  Country: US (occurrence: None)
  Receive Date: 20230315
  Receipt Date: 20230315
  Transmission Date: 20230417
  Serious: Yes (Other)
  Sender: FDA-Public Use
  Company Number: 2023A058734

PATIENT
  Age: 77 Year
  Sex: Male

DRUGS (2)
  1. NEXIUM [Suspect]
     Active Substance: ESOMEPRAZOLE MAGNESIUM
     Route: 048
  2. OFEV [Suspect]
     Active Substance: NINTEDANIB
     Indication: Idiopathic pulmonary fibrosis
     Route: 048
     Dates: start: 20190220

REACTIONS (12)
  - Idiopathic pulmonary fibrosis [Not Recovered/Not Resolved]
  - Diarrhoea [Not Recovered/Not Resolved]
  - Lip dry [Unknown]
  - Asthenia [Unknown]
  - Decreased appetite [Unknown]
  - Faeces soft [Unknown]
  - Abdominal pain upper [Unknown]
  - Fatigue [Unknown]
  - Hypotonia [Unknown]
  - Dry mouth [Unknown]
  - Weight decreased [Unknown]
  - Eating disorder [Unknown]
